FAERS Safety Report 7222196-9 (Version None)
Quarter: 2011Q1

REPORT INFORMATION
  Report Type: 
  Country: None (occurrence: None)
  Receive Date: 20110112
  Receipt Date: 20101230
  Transmission Date: 20110831
  Serious: Yes (Hospitalization)
  Sender: FDA-Public Use
  Company Number: RU-ELI_LILLY_AND_COMPANY-RU201006006785

PATIENT
  Sex: Male

DRUGS (7)
  1. HEPTRAL [Concomitant]
     Indication: PROPHYLAXIS
     Route: 048
     Dates: start: 20100519, end: 20100526
  2. GEMCITABINE HCL [Suspect]
     Indication: PANCREATIC CARCINOMA
     Dosage: 1000 MG/M2 (1890 MG),
     Dates: start: 20100513, end: 20100527
  3. PACLITAXEL [Suspect]
     Indication: PANCREATIC CARCINOMA
     Dosage: 125 MG/M2 (237 MG)
     Dates: start: 20100513, end: 20100527
  4. ATENOLOL [Concomitant]
     Indication: PROPHYLAXIS
  5. ASPIRIN [Concomitant]
     Indication: PROPHYLAXIS
  6. MAGNESIUM HYDROXIDE [Concomitant]
     Indication: PROPHYLAXIS
  7. PANCRELIPASE [Concomitant]
     Indication: PROPHYLAXIS

REACTIONS (2)
  - SEPTIC SHOCK [None]
  - MUCOSAL INFLAMMATION [None]
